FAERS Safety Report 5898382-7 (Version None)
Quarter: 2008Q3

REPORT INFORMATION
  Report Type: 
  Country: None (occurrence: None)
  Receive Date: 20080925
  Receipt Date: 20071010
  Transmission Date: 20090109
  Serious: No
  Sender: FDA-Public Use
  Company Number: A0686899A

PATIENT
  Age: 48 Year
  Sex: Female

DRUGS (8)
  1. WELLBUTRIN XL [Suspect]
     Indication: DEPRESSION
     Dosage: 300MG PER DAY
     Route: 048
     Dates: end: 20071004
  2. WELLBUTRIN XL [Suspect]
     Dosage: 300MG PER DAY
     Route: 048
  3. AMBIEN [Concomitant]
  4. METFORMIN HCL [Concomitant]
  5. MS CONTIN [Concomitant]
     Dosage: 30MG TWICE PER DAY
  6. FLINTSTONE VITAMINS [Concomitant]
  7. LORAZEPAM [Concomitant]
  8. ASPIRIN + OXYCODONE [Concomitant]

REACTIONS (10)
  - ANGER [None]
  - COMMUNICATION DISORDER [None]
  - CRYING [None]
  - DYSARTHRIA [None]
  - IRRITABILITY [None]
  - PERFORMANCE STATUS DECREASED [None]
  - SEDATION [None]
  - SOMNOLENCE [None]
  - SWOLLEN TONGUE [None]
  - THIRST [None]
